FAERS Safety Report 7910734-X (Version None)
Quarter: 2011Q4

REPORT INFORMATION
  Report Type: 
  Country: None (occurrence: None)
  Receive Date: 20111112
  Receipt Date: 20111102
  Transmission Date: 20120403
  Serious: Yes (Hospitalization, Other)
  Sender: FDA-Public Use
  Company Number: DE-ASTRAZENECA-2011SE45381

PATIENT
  Age: 45 Year
  Sex: Female

DRUGS (2)
  1. ZOLADEX [Suspect]
     Indication: BREAST CANCER
     Route: 058
     Dates: start: 20110708, end: 20110727
  2. TAMOXIFEN CITRATE [Concomitant]
     Indication: BREAST CANCER
     Route: 048
     Dates: start: 20110709

REACTIONS (6)
  - HEADACHE [None]
  - HALLUCINATION, AUDITORY [None]
  - HOT FLUSH [None]
  - BONE PAIN [None]
  - PARAESTHESIA [None]
  - ARTHRALGIA [None]
